FAERS Safety Report 9733871 (Version 1)
Quarter: 2013Q4

REPORT INFORMATION
  Report Type: Spontaneous
  Country: US (occurrence: US)
  Receive Date: 20131205
  Receipt Date: 20131205
  Transmission Date: 20140711
  Serious: No
  Sender: FDA-Public Use
  Company Number: US-BAYER-2013-142188

PATIENT
  Age: 81 Year
  Sex: Male
  Weight: 83.9 kg

DRUGS (9)
  1. ALEVE LIQUID GELS [Suspect]
     Indication: PARAESTHESIA
     Dosage: 2 DF, BID
     Route: 048
     Dates: start: 201311, end: 20131117
  2. ALEVE CAPLET [Suspect]
     Indication: PARAESTHESIA
     Dosage: 2 DF, BID
     Route: 048
  3. TAMSULOSIN [Concomitant]
  4. SIMVASTATIN [Concomitant]
  5. FINASTERIDE [Concomitant]
  6. BENAZEPRIL [Concomitant]
  7. VITAMIN D3 [Concomitant]
  8. OSCAL [Concomitant]
  9. FAMOTIDINE [Concomitant]

REACTIONS (4)
  - Drug ineffective [None]
  - Incorrect drug administration duration [None]
  - Off label use [None]
  - Extra dose administered [None]
